FAERS Safety Report 6783120-6 (Version None)
Quarter: 2010Q2

REPORT INFORMATION
  Report Type: 
  Country: None (occurrence: None)
  Receive Date: 20100622
  Receipt Date: 20100610
  Transmission Date: 20101027
  Serious: Yes (Other)
  Sender: FDA-Public Use
  Company Number: AU-JNJFOC-20100600951

PATIENT
  Age: 50 Year
  Sex: Female

DRUGS (1)
  1. REMICADE [Suspect]
     Indication: LICHEN PLANUS
     Route: 042

REACTIONS (3)
  - ANTINUCLEAR ANTIBODY POSITIVE [None]
  - DOUBLE STRANDED DNA ANTIBODY POSITIVE [None]
  - EPIDEMIC POLYARTHRITIS [None]
